FAERS Safety Report 4544901-2 (Version None)
Quarter: 2004Q4

REPORT INFORMATION
  Report Type: 
  Country: None (occurrence: None)
  Receive Date: 20041230
  Receipt Date: 20041215
  Transmission Date: 20050328
  Serious: Yes (Other)
  Sender: FDA-Public Use
  Company Number: GXKR2004JP00566

PATIENT
  Age: 12 Year
  Sex: Female

DRUGS (4)
  1. ISONIAZID (NGX)(ISONIAZID) UNKNOWN [Suspect]
     Indication: PULMONARY TUBERCULOSIS
     Dosage: ORAL
     Route: 048
  2. PYRAZINAMIDE (NGX) (PYRAZINAMIDE) [Suspect]
     Indication: PULMONARY TUBERCULOSIS
     Dosage: ORAL
     Route: 048
  3. RIMACTANE [Suspect]
     Indication: PULMONARY TUBERCULOSIS
     Dosage: ORAL
     Route: 048
  4. ESANBUTOL (ETHAMBUTOL) [Suspect]
     Indication: PULMONARY TUBERCULOSIS
     Dosage: ORAL
     Route: 048

REACTIONS (3)
  - PARADOXICAL DRUG REACTION [None]
  - PLEURAL FIBROSIS [None]
  - RESPIRATORY DISORDER [None]
